FAERS Safety Report 8590627-8 (Version None)
Quarter: 2012Q3

REPORT INFORMATION
  Report Type: 
  Country: None (occurrence: None)
  Receive Date: 20120731
  Receipt Date: 20120719
  Transmission Date: 20120928
  Serious: Yes (Hospitalization)
  Sender: FDA-Public Use
  Company Number: DSJ-2012-12196

PATIENT
  Age: 74 Year
  Sex: Female
  Weight: 36 kg

DRUGS (4)
  1. OLMESARTAN MEDOXOMIL [Suspect]
     Indication: ESSENTIAL HYPERTENSION
     Dosage: 10 MG, PER ORAL; 2.5 MG, PER ORAL; 5 MG, PER ORAL
     Route: 048
     Dates: start: 20100324, end: 20100811
  2. OLMESARTAN MEDOXOMIL [Suspect]
     Indication: ESSENTIAL HYPERTENSION
     Dosage: 10 MG, PER ORAL; 2.5 MG, PER ORAL; 5 MG, PER ORAL
     Route: 048
     Dates: start: 20100929, end: 20110720
  3. OLMESARTAN MEDOXOMIL [Suspect]
     Indication: ESSENTIAL HYPERTENSION
     Dosage: 10 MG, PER ORAL; 2.5 MG, PER ORAL; 5 MG, PER ORAL
     Route: 048
     Dates: start: 20111116, end: 20120606
  4. ZETIA [Concomitant]

REACTIONS (2)
  - HYPOTENSION [None]
  - ANGINA PECTORIS [None]
